FAERS Safety Report 6399041-7 (Version None)
Quarter: 2009Q4

REPORT INFORMATION
  Report Type: 
  Country: None (occurrence: None)
  Receive Date: 20091013
  Receipt Date: 20091006
  Transmission Date: 20100525
  Serious: Yes (Other)
  Sender: FDA-Public Use
  Company Number: US-GENENTECH-292025

PATIENT
  Sex: Female

DRUGS (1)
  1. XOLAIR [Suspect]
     Indication: ASTHMA
     Dosage: 450 MG, UNK

REACTIONS (3)
  - ABDOMINAL DISCOMFORT [None]
  - HYPERHIDROSIS [None]
  - URTICARIA [None]
